FAERS Safety Report 16806439 (Version 1)
Quarter: 2019Q3

REPORT INFORMATION
  Report Type: Spontaneous
  Country: US (occurrence: US)
  Receive Date: 20190913
  Receipt Date: 20190913
  Transmission Date: 20191005
  Serious: Yes (Other)
  Sender: FDA-Public Use
  Company Number: US-TEVA-2019-US-1105887

PATIENT

DRUGS (12)
  1. ASCORBIC ACID (VITAMIN C) [Concomitant]
     Active Substance: ASCORBIC ACID
     Route: 048
  2. GELATIN [Concomitant]
     Active Substance: GELATIN
     Dosage: 2 DOSAGE FORMS DAILY;
     Route: 065
  3. ALEVE [Concomitant]
     Active Substance: NAPROXEN SODIUM
     Dosage: DAILY WITH BREAKFAST AND SUPPER
     Route: 048
  4. MELATONIN (NATROL) [Concomitant]
     Dosage: DISINTEGRATING (DISSOLVE 3MG IN MOUTH AT BEDTIME)
     Route: 048
  5. TIOTROPIUM BROMIDE [Concomitant]
     Active Substance: TIOTROPIUM BROMIDE
     Dosage: 2.5MCG/ACTUATION MIST, INHALE 5MCG INTO THE 4G LUNGS DAILY
     Route: 065
  6. FOLIC ACID. [Concomitant]
     Active Substance: FOLIC ACID
     Indication: SYSTEMIC LUPUS ERYTHEMATOSUS
     Dosage: DAILY
     Route: 065
     Dates: start: 20190507
  7. THERAGRAN [Concomitant]
     Active Substance: VITAMINS
     Dosage: DAILY
     Route: 048
  8. TREXALL [Suspect]
     Active Substance: METHOTREXATE SODIUM
     Indication: RHEUMATOID ARTHRITIS
     Dosage: TAKE 7 TABLETS
     Route: 048
     Dates: start: 20190530, end: 20190801
  9. CALCIUM ASCORBATE (VITAMIN C) [Concomitant]
     Route: 048
  10. CALCIUM CARBONATE VITAMIN D3 [Concomitant]
     Route: 048
  11. OMEGA 3-DHA-EPA-FISH OIL [Concomitant]
     Dosage: 100-160-1000 MG
     Route: 048
  12. FOLVITE [Concomitant]
     Active Substance: FOLIC ACID
     Dosage: DAILY
     Route: 048

REACTIONS (2)
  - Aspartate aminotransferase increased [Recovering/Resolving]
  - Alanine aminotransferase increased [Recovering/Resolving]
